FAERS Safety Report 8203162-3 (Version None)
Quarter: 2012Q1

REPORT INFORMATION
  Report Type: 
  Country: None (occurrence: None)
  Receive Date: 20120312
  Receipt Date: 20120301
  Transmission Date: 20120608
  Serious: Yes (Death)
  Sender: FDA-Public Use
  Company Number: GXBR2012US000794

PATIENT
  Age: 30 Year
  Sex: Male

DRUGS (5)
  1. MORPHINE [Suspect]
     Dosage: UNK MG, UNK
  2. GABAPENTIN [Suspect]
     Dosage: UNK MG, UNK
  3. ASCITRIN TAB [Suspect]
     Dosage: UNK MG, UNK
  4. HYDROXYZINE [Suspect]
     Dosage: UNK MG, UNK
  5. CETIRIZINE [Suspect]
     Dosage: UNK MG, UNK

REACTIONS (2)
  - COMPLETED SUICIDE [None]
  - TOXICITY TO VARIOUS AGENTS [None]
